FAERS Safety Report 11215067 (Version 1)
Quarter: 2015Q2

REPORT INFORMATION
  Report Type: Report from Study
  Country: GB (occurrence: GB)
  Receive Date: 20150624
  Receipt Date: 20150624
  Transmission Date: 20150821
  Serious: Yes (Other)
  Sender: FDA-Public Use
  Company Number: GB-JNJFOC-20150414833

PATIENT
  Age: 60 Year
  Sex: Male
  Weight: 104 kg

DRUGS (3)
  1. STELARA [Suspect]
     Active Substance: USTEKINUMAB
     Indication: PSORIASIS
     Route: 058
     Dates: start: 20110318
  2. STELARA [Suspect]
     Active Substance: USTEKINUMAB
     Indication: PSORIASIS
     Route: 058
     Dates: start: 20110318
  3. STELARA [Suspect]
     Active Substance: USTEKINUMAB
     Indication: PSORIATIC ARTHROPATHY
     Route: 058
     Dates: start: 20110318

REACTIONS (14)
  - Emphysema [Unknown]
  - Inappropriate schedule of drug administration [Unknown]
  - Injury [Unknown]
  - Psoriasis [Unknown]
  - Peripheral swelling [Unknown]
  - Laceration [Recovering/Resolving]
  - Pharyngitis [Recovered/Resolved]
  - Peripheral venous disease [Unknown]
  - Infective exacerbation of chronic obstructive airways disease [Not Recovered/Not Resolved]
  - Arthralgia [Unknown]
  - Pigmentation disorder [Unknown]
  - Lower respiratory tract infection [Recovered/Resolved]
  - Dry eye [Unknown]
  - Arthralgia [Unknown]

NARRATIVE: CASE EVENT DATE: 20110622
